FAERS Safety Report 16062057 (Version 15)
Quarter: 2023Q1

REPORT INFORMATION
  Report Type: Other
  Country: DE (occurrence: None)
  Receive Date: 20190312
  Receipt Date: 20230317
  Transmission Date: 20230418
  Serious: Yes (Hospitalization)
  Sender: FDA-Public Use
  Company Number: DE-ROCHE-2278493

PATIENT
  Age: 61 Year
  Sex: Female

DRUGS (6)
  1. OCREVUS [Suspect]
     Active Substance: OCRELIZUMAB
     Indication: Primary progressive multiple sclerosis
     Route: 042
     Dates: start: 20181114
  2. OCREVUS [Suspect]
     Active Substance: OCRELIZUMAB
     Route: 042
     Dates: start: 20190606
  3. OCREVUS [Suspect]
     Active Substance: OCRELIZUMAB
     Route: 042
     Dates: start: 20200820
  4. OCREVUS [Suspect]
     Active Substance: OCRELIZUMAB
     Route: 042
     Dates: start: 20210309, end: 20210309
  5. MIRABEGRON [Concomitant]
     Active Substance: MIRABEGRON
  6. MELATONIN [Concomitant]
     Active Substance: MELATONIN
     Route: 048

REACTIONS (11)
  - Clavicle fracture [Recovered/Resolved]
  - Scapula fracture [Recovered/Resolved]
  - Fall [Unknown]
  - Influenza [Recovered/Resolved]
  - Cerebral calcification [Not Recovered/Not Resolved]
  - Vein disorder [Unknown]
  - Peripheral coldness [Not Recovered/Not Resolved]
  - Muscle atrophy [Not Recovered/Not Resolved]
  - COVID-19 [Not Recovered/Not Resolved]
  - Skin discolouration [Not Recovered/Not Resolved]
  - Osteoporosis [Not Recovered/Not Resolved]

NARRATIVE: CASE EVENT DATE: 20181224
